FAERS Safety Report 14897028 (Version 2)
Quarter: 2018Q2

REPORT INFORMATION
  Report Type: Spontaneous
  Country: IE (occurrence: IE)
  Receive Date: 20180515
  Receipt Date: 20180529
  Transmission Date: 20180711
  Serious: Yes (Other)
  Sender: FDA-Public Use
  Company Number: IE-JNJFOC-20180505782

PATIENT
  Age: 3 Decade
  Sex: Female

DRUGS (1)
  1. ORTHO EVRA [Suspect]
     Active Substance: ETHINYL ESTRADIOL\NORELGESTROMIN
     Indication: PRODUCT USED FOR UNKNOWN INDICATION
     Route: 062
     Dates: end: 2018

REACTIONS (4)
  - Pruritus [Unknown]
  - Internal haemorrhage [Unknown]
  - Erythema [Unknown]
  - Contusion [Unknown]

NARRATIVE: CASE EVENT DATE: 2018
